FAERS Safety Report 9805920 (Version 2)
Quarter: 2014Q1

REPORT INFORMATION
  Report Type: Report from Study
  Country: NL (occurrence: NL)
  Receive Date: 20140109
  Receipt Date: 20140127
  Transmission Date: 20141002
  Serious: Yes (Death)
  Sender: FDA-Public Use
  Company Number: PHHY2014NL001976

PATIENT
  Sex: Male

DRUGS (13)
  1. ZOMETA [Suspect]
     Indication: LUNG CARCINOMA CELL TYPE UNSPECIFIED STAGE IV
     Dosage: 4 MG/100ML, ONCE EVERY 6 WEEKS
     Route: 042
     Dates: start: 20131026
  2. ZOMETA [Suspect]
     Indication: HYPERCALCAEMIA
     Dosage: 4 MG/100ML, ONCE EVERY 6 WEEKS
     Route: 042
     Dates: end: 20131121
  3. HYDROCHLOROTHIAZIDE [Concomitant]
     Dosage: 12.5 MG, ONCE DAILY  12.5MG
  4. PARACETAMOL [Concomitant]
     Dosage: 500 MG, 4 DD 1000MG
  5. METOPROLOL SUCCINATE [Concomitant]
     Dosage: 1MG, 1 DD 75MG
  6. AMLODIPINE [Concomitant]
     Dosage: 5MG,1 DD 5MG
  7. LOSARTAN POTASSIUM [Concomitant]
     Dosage: 50 MG, 1 DD 50MG
  8. PROMOCARD [Concomitant]
     Dosage: 30 MG, 1 DD 30MG
  9. SPIRIVA [Concomitant]
     Dosage: 18 MCG, 1 DD 18MCG
  10. OMEPRAZOLE [Concomitant]
     Dosage: 80 MG,1 DD 20MG
  11. ACETYLSALICYLIC ACID [Concomitant]
     Dosage: 80 MG, 1 DD 80MG
  12. ATORVASTATIN [Concomitant]
     Dosage: 10 MG, 1 DD 10MG
  13. FLUTICASON [Concomitant]
     Dosage: 50 MCG, 1 DD 2

REACTIONS (2)
  - Lung carcinoma cell type unspecified stage IV [Fatal]
  - Hypercalcaemia [Fatal]
